FAERS Safety Report 24612935 (Version 1)
Quarter: 2024Q4

REPORT INFORMATION
  Report Type: Spontaneous
  Country: US (occurrence: US)
  Receive Date: 20241113
  Receipt Date: 20241113
  Transmission Date: 20250115
  Serious: No
  Sender: TEVA
  Company Number: US-TEVA-VS-3258744

PATIENT
  Sex: Male

DRUGS (1)
  1. PROAIR DIGIHALER [Suspect]
     Active Substance: ALBUTEROL SULFATE
     Indication: Bronchitis
     Dosage: DOSE IS TO TAKE 2 PUFFS
     Route: 065

REACTIONS (3)
  - Cough [Unknown]
  - Back pain [Unknown]
  - Device use issue [Unknown]
